FAERS Safety Report 9832760 (Version 1)
Quarter: 2014Q1

REPORT INFORMATION
  Report Type: Spontaneous
  Country: US (occurrence: US)
  Receive Date: 20140121
  Receipt Date: 20140121
  Transmission Date: 20141002
  Serious: Yes (Hospitalization)
  Sender: FDA-Public Use
  Company Number: US-GLAXOSMITHKLINE-A1056569A

PATIENT
  Age: 66 Year
  Sex: Male

DRUGS (9)
  1. COREG [Suspect]
     Indication: BLOOD PRESSURE ABNORMAL
     Route: 065
  2. COREG CR [Suspect]
     Indication: BLOOD PRESSURE ABNORMAL
     Dosage: 20MG PER DAY
     Route: 048
  3. LIPITOR [Concomitant]
  4. TRICOR [Concomitant]
  5. DIAZEPAM [Concomitant]
  6. UNKNOWN MEDICATION [Concomitant]
  7. PANTOPRAZOLE [Concomitant]
  8. AMIODARONE [Concomitant]
  9. UNKNOWN MEDICATION [Concomitant]

REACTIONS (3)
  - Gastric ulcer [Recovering/Resolving]
  - Red blood cell count decreased [Recovering/Resolving]
  - Blood pressure inadequately controlled [Recovered/Resolved]
